FAERS Safety Report 13436385 (Version 1)
Quarter: 2017Q2

REPORT INFORMATION
  Report Type: Spontaneous
  Country: PT (occurrence: PT)
  Receive Date: 20170413
  Receipt Date: 20170413
  Transmission Date: 20170830
  Serious: Yes (Other)
  Sender: FDA-Public Use
  Company Number: PT-PFIZER INC-2017157501

PATIENT
  Age: 80 Year
  Sex: Male

DRUGS (1)
  1. VIAGRA [Suspect]
     Active Substance: SILDENAFIL CITRATE
     Indication: ERECTILE DYSFUNCTION
     Dosage: UNK
     Dates: start: 2008

REACTIONS (3)
  - Condition aggravated [Unknown]
  - Physical assault [Unknown]
  - Aggression [Unknown]

NARRATIVE: CASE EVENT DATE: 2008
